FAERS Safety Report 7358052-5 (Version None)
Quarter: 2011Q1

REPORT INFORMATION
  Report Type: 
  Country: None (occurrence: None)
  Receive Date: 20110307
  Receipt Date: 20100617
  Transmission Date: 20110831
  Serious: No
  Sender: FDA-Public Use
  Company Number: AEUSA201000226

PATIENT
  Age: 82 Year
  Sex: Female

DRUGS (2)
  1. PROLASTIN-C [Suspect]
     Dosage: IV
     Route: 042
     Dates: start: 20100101, end: 20100617
  2. PROLASTIN [Concomitant]

REACTIONS (1)
  - INFUSION RELATED REACTION [None]
